FAERS Safety Report 14551759 (Version 1)
Quarter: 2018Q1

REPORT INFORMATION
  Report Type: Spontaneous
  Country: US (occurrence: US)
  Receive Date: 20180220
  Receipt Date: 20180220
  Transmission Date: 20180509
  Serious: No
  Sender: FDA-Public Use
  Company Number: US-IPSEN BIOPHARMACEUTICALS, INC.-2017-11579

PATIENT
  Age: 54 Year
  Sex: Female

DRUGS (6)
  1. IBUPROFEN. [Suspect]
     Active Substance: IBUPROFEN
     Indication: PRODUCT USED FOR UNKNOWN INDICATION
  2. DYSPORT [Suspect]
     Active Substance: ABOBOTULINUMTOXINA
     Indication: SKIN WRINKLING
     Dosage: NOT REPORTED
     Route: 065
     Dates: start: 20170724, end: 20170724
  3. VOLBELLA [Suspect]
     Active Substance: HYALURONIC ACID
     Indication: SKIN COSMETIC PROCEDURE
     Dates: start: 20170724, end: 20170724
  4. RESTYLANE [Suspect]
     Active Substance: HYALURONIC ACID
     Indication: SKIN COSMETIC PROCEDURE
     Dates: start: 20170724, end: 20170724
  5. DYSPORT [Suspect]
     Active Substance: ABOBOTULINUMTOXINA
     Indication: SKIN WRINKLING
  6. VOLUMA [Suspect]
     Active Substance: UNSPECIFIED INGREDIENT
     Indication: SKIN COSMETIC PROCEDURE
     Dates: start: 20170724, end: 20170724

REACTIONS (9)
  - Erythema [Recovering/Resolving]
  - Feeling hot [Recovered/Resolved]
  - Tenderness [Recovered/Resolved]
  - Immune-mediated adverse reaction [Recovering/Resolving]
  - Infection [Recovering/Resolving]
  - Eye swelling [Recovering/Resolving]
  - Inflammation [Recovering/Resolving]
  - Contusion [Recovering/Resolving]
  - Swelling [Recovering/Resolving]

NARRATIVE: CASE EVENT DATE: 20170724
